FAERS Safety Report 7384783-7 (Version None)
Quarter: 2011Q1

REPORT INFORMATION
  Report Type: 
  Country: None (occurrence: None)
  Receive Date: 20110330
  Receipt Date: 20110306
  Transmission Date: 20110831
  Serious: No
  Sender: FDA-Public Use
  Company Number: US-B.I. PHARMACEUTICALS,INC./RIDGEFIELD-2011-BP-06989BP

PATIENT
  Sex: Male

DRUGS (10)
  1. RANITIDINE [Concomitant]
     Indication: DYSPEPSIA
     Dosage: 2 TABLETS DAILY
     Route: 048
  2. POTASSIUM M [Concomitant]
     Indication: JOINT SWELLING
     Dosage: 2  TABLETS DAILY
     Route: 048
  3. QVAR 40 [Concomitant]
     Indication: CHRONIC OBSTRUCTIVE PULMONARY DISEASE
     Dosage: 4 PUFFS DAILY
  4. LOSARTAN POTASSIUM [Concomitant]
     Indication: BLOOD PRESSURE
     Dosage: ONCE DAILY
     Route: 048
  5. PRADAXA [Suspect]
     Indication: ATRIAL FIBRILLATION
     Dosage: 300 MG
     Route: 048
     Dates: start: 20110301
  6. NEXIUM [Concomitant]
     Indication: DYSPEPSIA
     Dosage: ONCE
     Route: 048
  7. FISH [Concomitant]
     Indication: CARDIAC DISORDER
     Dosage: ONCE DAILY
     Route: 048
  8. CRESTOR [Concomitant]
     Indication: BLOOD CHOLESTEROL
     Dosage: ONCE DAILY
     Route: 048
  9. LASIX [Concomitant]
     Indication: JOINT SWELLING
     Dosage: ONCE DAILY
     Route: 048
  10. NEXIUM [Concomitant]
     Indication: HIATUS HERNIA

REACTIONS (1)
  - HEART RATE IRREGULAR [None]
